FAERS Safety Report 5025062-2 (Version None)
Quarter: 2006Q2

REPORT INFORMATION
  Report Type: 
  Country: None (occurrence: None)
  Receive Date: 20060608
  Receipt Date: 20060608
  Transmission Date: 20061013
  Serious: Yes (Hospitalization)
  Sender: FDA-Public Use
  Company Number: None

PATIENT
  Age: 70 Year
  Sex: Male
  Weight: 56.09 kg

DRUGS (13)
  1. SEPTRA [Suspect]
     Indication: SEPSIS
     Dosage: 8.75 ML IN D5W 2X Q 6 H
     Dates: start: 20060118, end: 20060125
  2. APAP TAB [Concomitant]
  3. PEROCET [Concomitant]
  4. ALBUTEROL INHALDER [Concomitant]
  5. PANCREATIC [Concomitant]
  6. GATIFLOXACIN [Concomitant]
  7. HEPARIN [Concomitant]
  8. KETOCONAZOLE [Concomitant]
  9. METRONIDAZOLE [Concomitant]
  10. MULTI-VITAMIN [Concomitant]
  11. OMEPRAZOLE [Concomitant]
  12. ZOSYN [Concomitant]
  13. PROMETHAZINE [Concomitant]

REACTIONS (1)
  - BLOOD POTASSIUM INCREASED [None]
